FAERS Safety Report 23499598 (Version 1)
Quarter: 2024Q1

REPORT INFORMATION
  Report Type: Other
  Country: NZ (occurrence: NZ)
  Receive Date: 20240208
  Receipt Date: 20240208
  Transmission Date: 20240409
  Serious: Yes (Other)
  Sender: FDA-Public Use
  Company Number: NZ-TASMAN PHARMA, INC.-2024TSM00079

PATIENT
  Sex: Male

DRUGS (4)
  1. CLOZAPINE [Suspect]
     Active Substance: CLOZAPINE
     Dosage: UNK
  2. EPILIM [Suspect]
     Active Substance: VALPROATE SODIUM
     Dosage: UNK
  3. AMISULPRIDE [Concomitant]
     Active Substance: AMISULPRIDE
  4. LACTULOSE [Concomitant]
     Active Substance: LACTULOSE

REACTIONS (4)
  - Chronic kidney disease [Unknown]
  - Sepsis [Unknown]
  - Diabetes mellitus [Unknown]
  - Asthenia [Unknown]
